FAERS Safety Report 7746638-5 (Version None)
Quarter: 2011Q3

REPORT INFORMATION
  Report Type: 
  Country: None (occurrence: None)
  Receive Date: 20110908
  Receipt Date: 20110826
  Transmission Date: 20111222
  Serious: Yes (Other)
  Sender: FDA-Public Use
  Company Number: NGX_00585_2011

PATIENT
  Sex: Female
  Weight: 75 kg

DRUGS (6)
  1. AMITRIPTYLINE HCL [Concomitant]
  2. DICLOFENAC SODIUM [Concomitant]
  3. GABAPENTIN [Concomitant]
  4. QUTENZA [Suspect]
     Indication: NEUROPATHY PERIPHERAL
     Dosage: 1 DF, [PATCH, APPLIED TO RIGHT HEMI THORAX] TOPICAL
     Route: 061
     Dates: start: 20110516, end: 20110516
  5. METHADONE HCL [Concomitant]
  6. BROMAZEPAM [Concomitant]

REACTIONS (11)
  - COUGH [None]
  - ANAL PRURITUS [None]
  - BLOOD GASES ABNORMAL [None]
  - TRACHEOBRONCHITIS [None]
  - INFLUENZA [None]
  - BRONCHOSPASM [None]
  - PRODUCTIVE COUGH [None]
  - WHEEZING [None]
  - PRURITUS [None]
  - DRUG HYPERSENSITIVITY [None]
  - RASH [None]
